FAERS Safety Report 12669141 (Version 2)
Quarter: 2016Q4

REPORT INFORMATION
  Report Type: Spontaneous
  Country: US (occurrence: US)
  Receive Date: 20160819
  Receipt Date: 20161111
  Transmission Date: 20170207
  Serious: Yes (Other)
  Sender: FDA-Public Use
  Company Number: US-TEVA-685790USA

PATIENT
  Age: 60 Year
  Sex: Male
  Weight: 99.88 kg

DRUGS (3)
  1. LUPRON [Concomitant]
     Active Substance: LEUPROLIDE ACETATE
  2. BICALUTAMIDE. [Suspect]
     Active Substance: BICALUTAMIDE
     Indication: PROSTATE CANCER
     Dates: start: 20160729, end: 20160818
  3. TYLENOL [Concomitant]
     Active Substance: ACETAMINOPHEN

REACTIONS (18)
  - Erectile dysfunction [Unknown]
  - Abdominal distension [Unknown]
  - Hypoaesthesia [Unknown]
  - Confusional state [Unknown]
  - Hot flush [Unknown]
  - Decreased appetite [Unknown]
  - Disorientation [Unknown]
  - Hyperhidrosis [Unknown]
  - Flank pain [Unknown]
  - Somnolence [Unknown]
  - Insomnia [Unknown]
  - Headache [Unknown]
  - Nephrolithiasis [Recovered/Resolved]
  - Back pain [Unknown]
  - Abdominal discomfort [Unknown]
  - Nausea [Unknown]
  - Asthenia [Unknown]
  - Hypertension [Unknown]

NARRATIVE: CASE EVENT DATE: 20160805
